FAERS Safety Report 16763591 (Version 1)
Quarter: 2019Q3

REPORT INFORMATION
  Report Type: Spontaneous
  Country: JP (occurrence: JP)
  Receive Date: 20190902
  Receipt Date: 20190902
  Transmission Date: 20191005
  Serious: Yes (Death, Hospitalization)
  Sender: FDA-Public Use
  Company Number: JP-ACTELION-A-CH2018-168491

PATIENT
  Age: 67 Year
  Sex: Female
  Weight: 39 kg

DRUGS (15)
  1. AMIODARONE HYDROCHLORIDE. [Suspect]
     Active Substance: AMIODARONE HYDROCHLORIDE
     Indication: PRODUCT USED FOR UNKNOWN INDICATION
     Dosage: 100 MG, QD
     Route: 048
     Dates: end: 20180129
  2. OPSUMIT [Suspect]
     Active Substance: MACITENTAN
     Indication: PULMONARY ARTERIAL HYPERTENSION
     Dosage: 10 MG, QD
     Route: 048
     Dates: start: 20170522, end: 20180204
  3. SAMSCA [Concomitant]
     Active Substance: TOLVAPTAN
     Dosage: 15 MG, QD
  4. OXYGEN. [Concomitant]
     Active Substance: OXYGEN
  5. TAKELDA [Concomitant]
     Active Substance: ASPIRIN\LANSOPRAZOLE
     Dosage: 1 DF, QD
  6. ADCIRCA [Concomitant]
     Active Substance: TADALAFIL
     Indication: PULMONARY ARTERIAL HYPERTENSION
     Dosage: 40 MG, QD
  7. FUROSEMIDE. [Concomitant]
     Active Substance: FUROSEMIDE
     Dosage: 80 MG, QD
  8. AMIODARONE HYDROCHLORIDE. [Suspect]
     Active Substance: AMIODARONE HYDROCHLORIDE
     Dosage: 50 MG, QD
     Route: 048
     Dates: start: 20171208, end: 20180129
  9. MIYA-BM [Concomitant]
     Active Substance: CLOSTRIDIUM BUTYRICUM SPORES STRAIN M-55
     Dosage: 3 DF, QD
  10. DIART [Concomitant]
     Active Substance: AZOSEMIDE
     Dosage: 60 MG, QD
  11. UPTRAVI [Suspect]
     Active Substance: SELEXIPAG
     Dosage: 0.2 MG, BID
     Route: 048
     Dates: start: 20171209, end: 20171220
  12. WARFARIN [Concomitant]
     Active Substance: WARFARIN
     Dosage: 1.5 MG, QD
  13. BERAPROST NA [Concomitant]
     Active Substance: BERAPROST SODIUM
  14. UPTRAVI [Suspect]
     Active Substance: SELEXIPAG
     Indication: PULMONARY ARTERIAL HYPERTENSION
     Dosage: 0.4 MG, BID
     Route: 048
     Dates: start: 20171221, end: 20180204
  15. LUNESTA [Concomitant]
     Active Substance: ESZOPICLONE
     Dosage: 2 MG, QD

REACTIONS (4)
  - Respiratory failure [Fatal]
  - Dyspnoea [Fatal]
  - Interstitial lung disease [Fatal]
  - Cough [Fatal]

NARRATIVE: CASE EVENT DATE: 20180129
